FAERS Safety Report 7031168-9 (Version None)
Quarter: 2010Q4

REPORT INFORMATION
  Report Type: 
  Country: None (occurrence: None)
  Receive Date: 20101006
  Receipt Date: 20100923
  Transmission Date: 20110411
  Serious: Yes (Life-Threatening, Hospitalization)
  Sender: FDA-Public Use
  Company Number: DE-GENENTECH-307280

PATIENT
  Sex: Female
  Weight: 69.5 kg

DRUGS (2)
  1. RITUXIMAB [Suspect]
     Indication: NON-HODGKIN'S LYMPHOMA
     Dosage: 660 MG, UNK
     Route: 042
     Dates: end: 20100908
  2. BENDAMUSTINE [Suspect]
     Indication: NON-HODGKIN'S LYMPHOMA
     Dosage: 160 MG, UNK
     Route: 042
     Dates: end: 20100813

REACTIONS (1)
  - SYNCOPE [None]
